FAERS Safety Report 7832792-3 (Version None)
Quarter: 2011Q4

REPORT INFORMATION
  Report Type: 
  Country: None (occurrence: None)
  Receive Date: 20111024
  Receipt Date: 20111014
  Transmission Date: 20120403
  Serious: No
  Sender: FDA-Public Use
  Company Number: US-BIOGENIDEC-2011BI039946

PATIENT
  Age: 40 Year
  Sex: Female

DRUGS (5)
  1. TYSABRI [Suspect]
     Route: 042
  2. AVONEX [Concomitant]
     Indication: MULTIPLE SCLEROSIS
     Route: 030
     Dates: start: 20070702
  3. TYSABRI [Suspect]
     Indication: MULTIPLE SCLEROSIS
     Route: 042
     Dates: start: 20040101
  4. AZITHROMYCIN [Concomitant]
  5. PROZAC [Concomitant]

REACTIONS (10)
  - INFLUENZA LIKE ILLNESS [None]
  - DIARRHOEA [None]
  - DRUG HYPERSENSITIVITY [None]
  - HYPERSENSITIVITY [None]
  - VARICELLA [None]
  - MULTIPLE SCLEROSIS RELAPSE [None]
  - VOMITING [None]
  - ARTHRALGIA [None]
  - SLEEP APNOEA SYNDROME [None]
  - REACTION TO PRESERVATIVES [None]
